FAERS Safety Report 4634623-1 (Version None)
Quarter: 2005Q2

REPORT INFORMATION
  Report Type: 
  Country: None (occurrence: None)
  Receive Date: 20050411
  Receipt Date: 20050328
  Transmission Date: 20051028
  Serious: Yes (Hospitalization)
  Sender: FDA-Public Use
  Company Number: 213452

PATIENT
  Age: 34 Year
  Sex: Female
  Weight: 56 kg

DRUGS (6)
  1. HERCEPTIN [Suspect]
     Indication: BREAST CANCER METASTATIC
     Dosage: 8 MG/KG, Q3W, INTRAVENOUS
     Route: 042
     Dates: start: 20050307
  2. DOCETAXEL (DOCETAXEL) [Suspect]
     Indication: BREAST CANCER METASTATIC
     Dosage: 100 MG/M2, Q3W, INTRAVENOUS
     Route: 042
     Dates: start: 20050307
  3. CODEINE PHOSPHATE (CODEINE PHOSPHATE) [Concomitant]
  4. IBUPROFEN-ARGININE (ARGININE, IBUPROFEN) [Concomitant]
  5. OMEPRAZOLE [Concomitant]
  6. PAROXETINE (PAROXETINE HYDROCHLORIDE) [Concomitant]

REACTIONS (1)
  - FEBRILE NEUTROPENIA [None]
